FAERS Safety Report 22744427 (Version 2)
Quarter: 2024Q2

REPORT INFORMATION
  Report Type: Report from Study
  Country: US (occurrence: US)
  Receive Date: 20230724
  Receipt Date: 20240509
  Transmission Date: 20240716
  Serious: Yes (Hospitalization)
  Sender: FDA-Public Use
  Company Number: US-PFIZER INC-US-GBT-017047

PATIENT
  Age: 23 Year
  Sex: Male

DRUGS (13)
  1. VOXELOTOR [Suspect]
     Active Substance: VOXELOTOR
     Indication: Sickle cell anaemia
     Dosage: 1500 MG, 1X/DAY
     Dates: start: 20220408, end: 202204
  2. VOXELOTOR [Suspect]
     Active Substance: VOXELOTOR
     Indication: Anaemia prophylaxis
  3. ADAKVEO [Concomitant]
     Active Substance: CRIZANLIZUMAB-TMCA
     Indication: Sickle cell disease
     Dosage: 5 MG/KG IN NACL 0.9% 100 ML INFUSION, CYCLIC
     Route: 042
     Dates: start: 20211217
  4. ROXICODONE [Concomitant]
     Active Substance: OXYCODONE HYDROCHLORIDE
     Indication: Sickle cell disease
     Dosage: 15 MG IMMEDIATE RELEASE TABLET, Q4H PRN
     Route: 048
     Dates: start: 20200923, end: 20230215
  5. MS CONTIN [Concomitant]
     Active Substance: MORPHINE SULFATE
     Indication: Sickle cell disease
     Dosage: 30 MG 12 EXTENDED RELEASE TABLET, 2X/DAY
     Route: 048
     Dates: start: 20220408, end: 20220531
  6. MOTRIN [Concomitant]
     Active Substance: IBUPROFEN
     Indication: Sickle cell disease
     Dosage: 600 MG, Q6H PRN
     Route: 048
     Dates: start: 20200402, end: 20230207
  7. AMOXIL [Concomitant]
     Active Substance: AMOXICILLIN
     Indication: Prophylaxis
     Dosage: 250 MG, 2X/DAY
     Route: 048
     Dates: start: 20190322
  8. NEURONTIN [Concomitant]
     Active Substance: GABAPENTIN
     Indication: Sickle cell disease
     Dosage: 300 MG, 2X/DAY
     Route: 048
     Dates: start: 20220215, end: 20220613
  9. HYDROXYUREA [Concomitant]
     Active Substance: HYDROXYUREA
     Indication: Sickle cell disease
     Dosage: 1500 MG, 1X/DAY(QOD)
     Route: 048
     Dates: start: 20170719
  10. HYDROXYUREA [Concomitant]
     Active Substance: HYDROXYUREA
     Dosage: 2000 MG, QOD
     Route: 048
     Dates: start: 20170719
  11. DRISDOL [Concomitant]
     Active Substance: ERGOCALCIFEROL
     Dosage: 1250 MCG (50000 UNIT), 1 CAPSULE, EVERY 14 DAYS
     Route: 048
     Dates: start: 20150917, end: 20220728
  12. FOLVITE [Concomitant]
     Active Substance: FOLIC ACID
     Indication: Sickle cell disease
     Dosage: 1 MG, 1X/DAY
     Route: 048
     Dates: start: 20121214
  13. TYLENOL [Concomitant]
     Active Substance: ACETAMINOPHEN
     Indication: Premedication
     Dosage: 650 MG, ONCE AT ADAKVEO INFUSION
     Route: 048
     Dates: start: 20211217

REACTIONS (2)
  - Acute chest syndrome [Recovered/Resolved]
  - Sickle cell anaemia with crisis [Recovered/Resolved]

NARRATIVE: CASE EVENT DATE: 20220425
